FAERS Safety Report 22185344 (Version 2)
Quarter: 2023Q2

REPORT INFORMATION
  Report Type: Spontaneous
  Country: US (occurrence: US)
  Receive Date: 20230407
  Receipt Date: 20230413
  Transmission Date: 20230721
  Serious: No
  Sender: FDA-Public Use
  Company Number: US-ELI_LILLY_AND_COMPANY-US202304000304

PATIENT
  Sex: Female

DRUGS (1)
  1. MOUNJARO [Suspect]
     Active Substance: TIRZEPATIDE
     Indication: Weight decreased
     Dosage: 2.5 MG, UNKNOWN
     Route: 065
     Dates: start: 20230328

REACTIONS (10)
  - Nervousness [Unknown]
  - Anxiety [Unknown]
  - Lack of satiety [Unknown]
  - Poor quality sleep [Unknown]
  - Feeding disorder [Unknown]
  - Hypoglycaemia [Unknown]
  - Off label use [Unknown]
  - Decreased appetite [Unknown]
  - Heart rate increased [Unknown]
  - Asthenia [Unknown]

NARRATIVE: CASE EVENT DATE: 20230330
